FAERS Safety Report 4735844-X (Version None)
Quarter: 2005Q3

REPORT INFORMATION
  Report Type: 
  Country: None (occurrence: None)
  Receive Date: 20050721
  Receipt Date: 20050525
  Transmission Date: 20060218
  Serious: No
  Sender: FDA-Public Use
  Company Number: 2005SP001035

PATIENT
  Age: 82 Year
  Sex: Male
  Weight: 72.5755 kg

DRUGS (6)
  1. LUNESTA [Suspect]
     Indication: INSOMNIA
     Dosage: SEE IMAGE
     Route: 048
     Dates: start: 20050523, end: 20050501
  2. LUNESTA [Suspect]
     Indication: INSOMNIA
     Dosage: SEE IMAGE
     Route: 048
     Dates: start: 20050523, end: 20050524
  3. KLONOPIN [Concomitant]
  4. METHADONE [Concomitant]
  5. NALBUPHINE [Concomitant]
  6. HYDROCHLORIDE [Concomitant]

REACTIONS (3)
  - DRUG INEFFECTIVE [None]
  - INITIAL INSOMNIA [None]
  - NAUSEA [None]
